FAERS Safety Report 10014627 (Version 1)
Quarter: 2014Q1

REPORT INFORMATION
  Report Type: Spontaneous
  Country: US (occurrence: US)
  Receive Date: 20140317
  Receipt Date: 20140317
  Transmission Date: 20141002
  Serious: Yes (Death, Other)
  Sender: FDA-Public Use
  Company Number: US-BRISTOL-MYERS SQUIBB COMPANY-20440475

PATIENT
  Sex: Male

DRUGS (3)
  1. BYETTA [Suspect]
     Dates: start: 200704, end: 200707
  2. JANUVIA [Suspect]
     Dosage: AUG2006-APR2007;JUL2007-AUG2007
     Dates: start: 200612, end: 200708
  3. JANUMET [Suspect]
     Dates: start: 200708, end: 2008

REACTIONS (1)
  - Pancreatic carcinoma [Fatal]
